FAERS Safety Report 5698374-7 (Version None)
Quarter: 2008Q2

REPORT INFORMATION
  Report Type: 
  Country: None (occurrence: None)
  Receive Date: 20080403
  Receipt Date: 20080320
  Transmission Date: 20081010
  Serious: Yes (Hospitalization, Other)
  Sender: FDA-Public Use
  Company Number: 2008S1003744

PATIENT
  Age: 43 Year
  Sex: Female
  Weight: 80 kg

DRUGS (8)
  1. DOXEPIN DURA (DOXEPIN HYDROCHLORIDE) [Suspect]
     Indication: INTENTIONAL OVERDOSE
     Dosage: 50 MG; ONCE;ORAL
     Route: 048
  2. IRON (IRON) [Suspect]
     Indication: INTENTIONAL OVERDOSE
     Dosage: 300 MG; ONCE; ORAL
     Route: 048
  3. HYDROCHLOROTHIAZIDE [Suspect]
     Indication: INTENTIONAL OVERDOSE
     Dosage: 200 MG; ONCE; ORAL
     Route: 048
  4. IBUPROFEN [Suspect]
     Indication: INTENTIONAL OVERDOSE
     Dosage: 6000 MG; ONCE; ORAL
     Route: 048
  5. METOPROLOL TARTRATE [Suspect]
     Indication: INTENTIONAL OVERDOSE
     Dosage: 200 MG; ONCE; ORAL
     Route: 048
  6. ALCOHOL (ETHANOL) [Suspect]
     Indication: INTENTIONAL OVERDOSE
     Dosage: ONCE; ORAL
     Route: 048
  7. TRAMADOL HCL [Suspect]
     Indication: INTENTIONAL OVERDOSE
     Dosage: 400 MG; ONCE; ORAL
     Route: 048
  8. TRAMADOL HCL [Suspect]
     Indication: INTENTIONAL OVERDOSE
     Dosage: 900 MG; ORAL
     Route: 048

REACTIONS (4)
  - BRADYCARDIA [None]
  - MULTIPLE DRUG OVERDOSE INTENTIONAL [None]
  - STUPOR [None]
  - SUICIDAL IDEATION [None]
